FAERS Safety Report 9397477 (Version 1)
Quarter: 2013Q3

REPORT INFORMATION
  Report Type: Report from Study
  Country: CN (occurrence: CN)
  Receive Date: 20130712
  Receipt Date: 20130712
  Transmission Date: 20140515
  Serious: Yes (Other)
  Sender: FDA-Public Use
  Company Number: CN-ROCHE-1245421

PATIENT
  Sex: 0

DRUGS (4)
  1. BEVACIZUMAB [Suspect]
     Indication: COLORECTAL CANCER
     Dosage: AT THE FIRST DAY EVERY 2-WEEK TREATMENT COURSE
     Route: 041
  2. RALTITREXED [Suspect]
     Indication: COLORECTAL CANCER
     Dosage: 15 MINUTES AT 2ND DAY EVERY 2-WEEK TREATMENT COURSE
     Route: 041
  3. IRINOTECAN [Suspect]
     Indication: COLORECTAL CANCER
     Dosage: 1H AT 2ND DAY EVERY 2-WEEK TREATMENT COURSE
     Route: 041
  4. OXALIPLATIN [Suspect]
     Indication: COLORECTAL CANCER
     Dosage: 2 H AT 2ND DAY EVERY 2-WEEK TREATMENT COURSE
     Route: 041

REACTIONS (13)
  - Decreased appetite [Unknown]
  - Nausea [Unknown]
  - Vomiting [Unknown]
  - Fatigue [Unknown]
  - Leukopenia [Unknown]
  - Alanine aminotransferase increased [Unknown]
  - Aspartate aminotransferase increased [Unknown]
  - Constipation [Unknown]
  - Diarrhoea [Unknown]
  - Thrombocytopenia [Unknown]
  - Renal impairment [Unknown]
  - Blood pressure systolic increased [Unknown]
  - Proteinuria [Unknown]
